FAERS Safety Report 24702052 (Version 2)
Quarter: 2024Q4

REPORT INFORMATION
  Report Type: Spontaneous
  Country: IL (occurrence: IL)
  Receive Date: 20241205
  Receipt Date: 20241219
  Transmission Date: 20250115
  Serious: Yes (Other)
  Sender: TEVA
  Company Number: IL-TEVA-VS-3269658

PATIENT
  Sex: Female

DRUGS (2)
  1. NAPROXEN [Suspect]
     Active Substance: NAPROXEN
     Indication: Myalgia
     Dosage: FOR 7?DAYS
     Route: 065
  2. PEMBROLIZUMAB [Suspect]
     Active Substance: PEMBROLIZUMAB
     Indication: Malignant melanoma
     Route: 065
     Dates: start: 202003

REACTIONS (9)
  - Eosinophilia [Recovered/Resolved]
  - Dyspnoea exertional [Recovered/Resolved]
  - Myalgia [Recovered/Resolved]
  - C-reactive protein increased [Recovered/Resolved]
  - Rash [Recovered/Resolved]
  - Polymyalgia rheumatica [Recovered/Resolved]
  - Non-pitting oedema [Recovered/Resolved]
  - Fatigue [Recovered/Resolved]
  - Drug ineffective [Unknown]
